FAERS Safety Report 19072727 (Version 1)
Quarter: 2021Q1

REPORT INFORMATION
  Report Type: Spontaneous
  Country: US (occurrence: US)
  Receive Date: 20210330
  Receipt Date: 20210330
  Transmission Date: 20210420
  Serious: Yes (Hospitalization, Other)
  Sender: FDA-Public Use
  Company Number: US-PFIZER INC-2021261488

PATIENT
  Age: 11 Year
  Sex: Female
  Weight: 29 kg

DRUGS (4)
  1. CHLORPROPAMIDE. [Suspect]
     Active Substance: CHLORPROPAMIDE
     Dosage: 250 MG, 2X/DAY
  2. CHLORPROPAMIDE. [Suspect]
     Active Substance: CHLORPROPAMIDE
     Indication: DIABETES INSIPIDUS
     Dosage: 500 MG, DAILY
  3. PITRESSIN TANNATE OIL [Concomitant]
     Indication: DIABETES INSIPIDUS
     Dosage: 1 ML (1 ML EVERY TWO DAYS)
  4. PREDNISONE. [Concomitant]
     Active Substance: PREDNISONE
     Dosage: 3 MG, DAILY (3 MG DAILY IN DIVIDED DOSES)

REACTIONS (4)
  - Brain injury [Recovering/Resolving]
  - Off label use [Unknown]
  - Hypoglycaemia [Recovering/Resolving]
  - Hypoglycaemic coma [Recovering/Resolving]
